FAERS Safety Report 8425615 (Version 3)
Quarter: 2012Q4

REPORT INFORMATION
  Report Type: 
  Country: GB (occurrence: GB)
  Receive Date: 20120224
  Receipt Date: 20121026
  Transmission Date: 20130627
  Serious: Yes (Other)
  Sender: FDA-Public Use
  Company Number: PHFR2011GB04086

PATIENT
  Age: 35 None
  Sex: Male

DRUGS (7)
  1. CLOZARIL [Suspect]
     Indication: SCHIZOPHRENIA
     Dosage: 275 mg, UNK
     Route: 048
     Dates: start: 20070910
  2. AMISULPRIDE [Suspect]
     Dosage: 400 mg, UNK
     Dates: start: 2008
  3. BISOPROLOL [Concomitant]
  4. SIMVASTATIN [Concomitant]
  5. METFORMIN [Concomitant]
  6. LANSOPRAZOLE [Concomitant]
  7. HYOSCINE [Concomitant]
     Indication: SALIVARY HYPERSECRETION
     Dosage: 300 mg, UNK
     Route: 048
     Dates: start: 2008

REACTIONS (3)
  - Hepatitis B [Unknown]
  - Thrombocytopenia [Not Recovered/Not Resolved]
  - Platelet count decreased [Not Recovered/Not Resolved]
